FAERS Safety Report 8699836 (Version 2)
Quarter: 2012Q4

REPORT INFORMATION
  Report Type: Report from Study
  Country: JP (occurrence: JP)
  Receive Date: 20120802
  Receipt Date: 20120918
  Transmission Date: 20130627
  Serious: Yes (Hospitalization)
  Sender: FDA-Public Use
  Company Number: JP-UCBSA-062810

PATIENT
  Age: 62 Year
  Sex: Male
  Weight: 58 kg

DRUGS (3)
  1. E KEPPRA [Suspect]
     Indication: PARTIAL SEIZURES WITH SECONDARY GENERALISATION
     Route: 048
     Dates: start: 20120310
  2. PHENYTOIN [Concomitant]
     Indication: PARTIAL SEIZURES WITH SECONDARY GENERALISATION
     Dosage: TOTAL DAILY DOSE: 400 MG
     Route: 048
     Dates: end: 20120606
  3. PHENOBARBITAL [Concomitant]
     Indication: PARTIAL SEIZURES WITH SECONDARY GENERALISATION
     Dosage: DAILY DOSE: 100 MG
     Route: 048
     Dates: end: 20120606

REACTIONS (2)
  - Anticonvulsant drug level increased [Recovered/Resolved]
  - Toxicity to various agents [Recovered/Resolved]
